FAERS Safety Report 4795095-X (Version None)
Quarter: 2005Q4

REPORT INFORMATION
  Report Type: 
  Country: None (occurrence: None)
  Receive Date: 20051012
  Receipt Date: 20050524
  Transmission Date: 20060501
  Serious: Yes (Life-Threatening)
  Sender: FDA-Public Use
  Company Number: JP-BRISTOL-MYERS SQUIBB COMPANY-12981361

PATIENT
  Age: 62 Year
  Sex: Female

DRUGS (4)
  1. TAXOL [Suspect]
     Indication: UTERINE CANCER
     Route: 042
     Dates: start: 20050426, end: 20050426
  2. DIPHENHYDRAMINE HCL [Concomitant]
     Route: 048
     Dates: start: 20050328, end: 20050426
  3. FAMOTIDINE [Concomitant]
     Route: 042
     Dates: start: 20050328, end: 20050426
  4. DEXAMETHASONE SODIUM PHOSPHATE [Concomitant]
     Route: 042
     Dates: start: 20050328, end: 20050426

REACTIONS (2)
  - ANAPHYLACTIC SHOCK [None]
  - CARDIO-RESPIRATORY ARREST [None]
